FAERS Safety Report 5955398-X (Version None)
Quarter: 2008Q4

REPORT INFORMATION
  Report Type: 
  Country: None (occurrence: None)
  Receive Date: 20081117
  Receipt Date: 20081106
  Transmission Date: 20090506
  Serious: Yes (Life-Threatening, Other)
  Sender: FDA-Public Use
  Company Number: FR-ELI_LILLY_AND_COMPANY-FR200810005778

PATIENT
  Sex: Female

DRUGS (10)
  1. PROZAC [Suspect]
     Dosage: 20 MG, DAILY (1/D)
     Route: 048
     Dates: start: 20080919, end: 20080922
  2. AXEPIM [Concomitant]
     Dosage: 2 G, 4/D
     Route: 042
     Dates: start: 20080918, end: 20080922
  3. AXEPIM [Concomitant]
     Dosage: 4 G, DAILY (1/D)
     Dates: start: 20081010
  4. DOLIPRANE [Concomitant]
     Dosage: 2 D/F, DAILY (1/D)
     Route: 048
     Dates: start: 20080918, end: 20080922
  5. SKENAN [Concomitant]
     Dosage: 30 MG, 2/D
     Route: 048
     Dates: start: 20080918, end: 20080922
  6. FORLAX [Concomitant]
     Dosage: UNK, UNK
     Route: 048
     Dates: start: 20080919, end: 20080922
  7. LOVENOX [Concomitant]
     Dosage: 0.4 ML, DAILY (1/D)
     Route: 058
     Dates: start: 20080919, end: 20080922
  8. LOVENOX [Concomitant]
     Dosage: 0.4 ML, DAILY (1/D)
     Route: 058
     Dates: start: 20081010
  9. MOPRAL [Concomitant]
     Dosage: 1 D/F, DAILY (1/D)
     Route: 048
     Dates: start: 20080918, end: 20080921
  10. LEXOMIL [Concomitant]
     Dosage: 0.75 D/F, DAILY (1/D)
     Route: 048
     Dates: start: 20080919, end: 20080922

REACTIONS (8)
  - CLONUS [None]
  - CONVULSION [None]
  - ENCEPHALOPATHY [None]
  - EPILEPSY [None]
  - HYPOTONIA [None]
  - LARYNGEAL OEDEMA [None]
  - RENAL FAILURE [None]
  - RESPIRATORY DISORDER [None]
